FAERS Safety Report 9059854 (Version 2)
Quarter: 2013Q1

REPORT INFORMATION
  Report Type: Spontaneous
  Country: FR (occurrence: FR)
  Receive Date: 20130212
  Receipt Date: 20130306
  Transmission Date: 20140127
  Serious: Yes (Other)
  Sender: FDA-Public Use
  Company Number: FR-JNJFOC-20130202538

PATIENT
  Age: 33 Year
  Sex: Female

DRUGS (1)
  1. STELARA [Suspect]
     Indication: PSORIASIS
     Dosage: INTRODUCED ONE YEAR AND A HALF BEFORE
     Route: 058
     Dates: start: 20110801

REACTIONS (3)
  - Rash [Unknown]
  - Rash pustular [Unknown]
  - Psoriasis [Unknown]
